FAERS Safety Report 20170690 (Version 1)
Quarter: 2021Q4

REPORT INFORMATION
  Report Type: Spontaneous
  Country: US (occurrence: US)
  Receive Date: 20211210
  Receipt Date: 20211210
  Transmission Date: 20220304
  Serious: No
  Sender: FDA-Public Use
  Company Number: US-JNJFOC-20211155860

PATIENT
  Age: 31 Year
  Sex: Female

DRUGS (2)
  1. WOMENS ROGAINE [Suspect]
     Active Substance: MINOXIDIL
     Indication: Alopecia
     Dosage: DOSE: DISPENSER FULL
     Route: 065
     Dates: start: 20210930, end: 2021
  2. WOMENS ROGAINE [Suspect]
     Active Substance: MINOXIDIL
     Dosage: DOSE: DISPENSER FULL?FREQUENCY- TWICE A DAY ONCE IN THE MORNING AN THEN EVENING.
     Route: 065
     Dates: start: 2021

REACTIONS (2)
  - Product use in unapproved indication [Unknown]
  - Off label use [Unknown]

NARRATIVE: CASE EVENT DATE: 20210930
